FAERS Safety Report 20082213 (Version 3)
Quarter: 2021Q4

REPORT INFORMATION
  Report Type: Report from Study
  Country: US (occurrence: US)
  Receive Date: 20211117
  Receipt Date: 20211214
  Transmission Date: 20220303
  Serious: Yes (Hospitalization)
  Sender: FDA-Public Use
  Company Number: US-ABBVIE-21P-163-4149503-00

PATIENT
  Age: 35 Year
  Sex: Male
  Weight: 62.2 kg

DRUGS (2)
  1. VENETOCLAX [Suspect]
     Active Substance: VENETOCLAX
     Indication: Precursor T-lymphoblastic leukaemia acute
     Route: 048
     Dates: start: 20211013, end: 20211024
  2. VINCRISTINE SULFATE LIPOSOMES [Concomitant]
     Indication: Precursor T-lymphoblastic leukaemia acute
     Dates: start: 20211013, end: 20211027

REACTIONS (5)
  - Herpes simplex reactivation [Recovered/Resolved with Sequelae]
  - Febrile neutropenia [Recovered/Resolved]
  - Skin infection [Recovered/Resolved with Sequelae]
  - Face oedema [Recovered/Resolved with Sequelae]
  - Stomatitis [Recovered/Resolved with Sequelae]

NARRATIVE: CASE EVENT DATE: 20211028
